FAERS Safety Report 4793450-5 (Version None)
Quarter: 2005Q4

REPORT INFORMATION
  Report Type: 
  Country: None (occurrence: None)
  Receive Date: 20051011
  Receipt Date: 20050217
  Transmission Date: 20060501
  Serious: No
  Sender: FDA-Public Use
  Company Number: US-BRISTOL-MYERS SQUIBB COMPANY-12868121

PATIENT
  Age: 47 Year
  Sex: Female
  Weight: 158 kg

DRUGS (22)
  1. GLUCOPHAGE [Suspect]
     Indication: DIABETES MELLITUS
     Dates: start: 19980101, end: 20040601
  2. GLUCOPHAGE XR [Suspect]
     Indication: DIABETES MELLITUS
     Dates: start: 20000101, end: 20050101
  3. AVANDIA [Concomitant]
     Indication: DIABETES MELLITUS
     Dates: start: 19980101
  4. AUGMENTIN '125' [Concomitant]
     Indication: DIABETES MELLITUS
     Dosage: DOSAGE FORM = 2MG/500MG
     Dates: start: 20040601, end: 20040101
  5. GLIPIZIDE [Concomitant]
     Indication: DIABETES MELLITUS
     Dates: start: 20040801, end: 20040101
  6. PRANDIN [Concomitant]
     Indication: DIABETES MELLITUS
     Dosage: DOSE CHANGED TO 2MG TID IN JAN-2005 THEN 2MG DAILY
     Dates: start: 20041101
  7. AVAPRO [Concomitant]
  8. NORVASC [Concomitant]
  9. PROTONIX [Concomitant]
  10. ADVAIR DISKUS 100/50 [Concomitant]
     Dosage: DOSE: 250/500 DOSAGE FORM: PUFF
  11. PROVENTIL [Concomitant]
     Dosage: ALSO USES AS NEEDED
  12. NASONEX [Concomitant]
     Dosage: DOSAGE FORM = SPRAY
  13. ZYRTEC [Concomitant]
  14. CELEBREX [Concomitant]
     Dosage: DOSE REDUCED TO ONCE DAILY THEN DISCONTINUED.
     Dates: end: 20050201
  15. SINGULAIR [Concomitant]
  16. PROZAC [Concomitant]
  17. BUSPAR [Concomitant]
  18. DEPAKOTE [Concomitant]
  19. CLINDAMYCIN [Concomitant]
     Indication: RASH
     Route: 061
  20. POTASSIUM [Concomitant]
  21. FUROSEMIDE [Concomitant]
  22. REGLAN [Concomitant]

REACTIONS (13)
  - ABDOMINAL PAIN [None]
  - AGITATION [None]
  - ASTHENIA [None]
  - BACK PAIN [None]
  - DIARRHOEA [None]
  - DIZZINESS [None]
  - FATIGUE [None]
  - FLATULENCE [None]
  - HYPERHIDROSIS [None]
  - INCREASED APPETITE [None]
  - PAIN [None]
  - POLLAKIURIA [None]
  - STOMACH DISCOMFORT [None]
